FAERS Safety Report 9352533 (Version 1)
Quarter: 2013Q2

REPORT INFORMATION
  Report Type: Spontaneous
  Country: US (occurrence: US)
  Receive Date: 20130618
  Receipt Date: 20130618
  Transmission Date: 20140414
  Serious: No
  Sender: FDA-Public Use
  Company Number: US-009507513-1306USA006344

PATIENT
  Sex: Female

DRUGS (1)
  1. DR. SCHOLLS CLEAR AWAY WART REMOVER ONE STEP [Suspect]
     Indication: HYPERKERATOSIS
     Dosage: UNK, UNKNOWN
     Route: 061
     Dates: start: 201304

REACTIONS (3)
  - Application site discolouration [Not Recovered/Not Resolved]
  - Application site erosion [Not Recovered/Not Resolved]
  - Drug ineffective [Unknown]
